FAERS Safety Report 14456902 (Version 1)
Quarter: 2018Q1

REPORT INFORMATION
  Report Type: Spontaneous
  Country: US (occurrence: US)
  Receive Date: 20180127
  Receipt Date: 20180127
  Transmission Date: 20180509
  Serious: No
  Sender: FDA-Public Use
  Company Number: None

PATIENT
  Age: 66 Year
  Sex: Female

DRUGS (1)
  1. CAPECITABINE TAB 500 MG BER [Suspect]
     Active Substance: CAPECITABINE

REACTIONS (5)
  - Insurance issue [None]
  - Peripheral swelling [None]
  - Tenderness [None]
  - Pain in extremity [None]
  - Drug dose omission [None]

NARRATIVE: CASE EVENT DATE: 20180126
